FAERS Safety Report 15570287 (Version 1)
Quarter: 2018Q4

REPORT INFORMATION
  Report Type: Spontaneous
  Country: US (occurrence: US)
  Receive Date: 20181025
  Receipt Date: 20181025
  Transmission Date: 20190205
  Serious: No
  Sender: FDA-Public Use
  Company Number: None

PATIENT
  Age: 43 Year
  Sex: Male
  Weight: 85.73 kg

DRUGS (1)
  1. REMICADE [Suspect]
     Active Substance: INFLIXIMAB
     Indication: CROHN^S DISEASE
     Dosage: ?          OTHER FREQUENCY:Q 7 WEEKS;?
     Route: 042
     Dates: start: 20180513, end: 20181023

REACTIONS (5)
  - Infusion related reaction [None]
  - Cough [None]
  - Erythema [None]
  - Chest discomfort [None]
  - Ocular hyperaemia [None]

NARRATIVE: CASE EVENT DATE: 20181023
